FAERS Safety Report 6791083-2 (Version None)
Quarter: 2010Q2

REPORT INFORMATION
  Report Type: 
  Country: None (occurrence: None)
  Receive Date: 20100624
  Receipt Date: 20100614
  Transmission Date: 20101027
  Serious: Yes (Hospitalization, Other)
  Sender: FDA-Public Use
  Company Number: US-ELI_LILLY_AND_COMPANY-US201002002446

PATIENT
  Sex: Female
  Weight: 60.317 kg

DRUGS (10)
  1. FORTEO [Suspect]
     Indication: OSTEOPOROSIS
     Dosage: 20 UG, DAILY (1/D)
     Dates: start: 20091007
  2. ECOTRIN [Concomitant]
  3. DIOVAN [Concomitant]
  4. ATENOLOL [Concomitant]
  5. METHOTREXATE [Concomitant]
  6. FOLIC ACID [Concomitant]
  7. CALCIUM CARBONATE [Concomitant]
     Dosage: 1500 U, UNKNOWN
  8. VITAMIN D [Concomitant]
     Dosage: 4000 U, UNKNOWN
  9. TYLENOL (CAPLET) [Concomitant]
  10. ARAVA [Concomitant]

REACTIONS (3)
  - CHEST DISCOMFORT [None]
  - CORONARY ARTERY OCCLUSION [None]
  - FATIGUE [None]
